FAERS Safety Report 15128852 (Version 1)
Quarter: 2018Q3

REPORT INFORMATION
  Report Type: Spontaneous
  Country: CN (occurrence: CN)
  Receive Date: 20180711
  Receipt Date: 20180711
  Transmission Date: 20181010
  Serious: Yes (Other)
  Sender: FDA-Public Use
  Company Number: CN-BAXTER-2018BAX018813

PATIENT
  Age: 17 Year
  Sex: Female
  Weight: 32 kg

DRUGS (5)
  1. 0.9% SODIUM CHLORIDE INJECTION [Suspect]
     Active Substance: SODIUM CHLORIDE
     Indication: MEDICATION DILUTION
     Dosage: SOLVENT FOR SANQI PANAX NOTOGINSENG
     Route: 041
     Dates: start: 20180416, end: 20180419
  2. 0.9% SODIUM CHLORIDE INJECTION [Suspect]
     Active Substance: SODIUM CHLORIDE
     Dosage: SOLVENT FOR CEPHATHIAMIDINE
     Route: 041
     Dates: start: 20180416, end: 20180419
  3. 20% MANNITOL INJECTION [Suspect]
     Active Substance: MANNITOL
     Indication: FEMUR FRACTURE
     Route: 041
     Dates: start: 20180416, end: 20180419
  4. CEFATHIAMIDINE [Suspect]
     Active Substance: CEFTRIAXONE SODIUM
     Indication: FEMUR FRACTURE
     Route: 041
     Dates: start: 20180416, end: 20180419
  5. SANQI PANAX NOTOGINSENG [Suspect]
     Active Substance: PANAX NOTOGINSENG ROOT
     Indication: FEMUR FRACTURE
     Route: 041
     Dates: start: 20180416, end: 20180419

REACTIONS (2)
  - Pruritus [Recovered/Resolved]
  - Rash [Recovered/Resolved]

NARRATIVE: CASE EVENT DATE: 20180419
